FAERS Safety Report 14533198 (Version 1)
Quarter: 2018Q1

REPORT INFORMATION
  Report Type: Report from Study
  Country: US (occurrence: US)
  Receive Date: 20180215
  Receipt Date: 20180215
  Transmission Date: 20180509
  Serious: Yes (Hospitalization, Other)
  Sender: FDA-Public Use
  Company Number: US-ROCHE-1172180

PATIENT
  Age: 53 Year
  Sex: Female
  Weight: 87.27 kg

DRUGS (26)
  1. BEVACIZUMAB. [Suspect]
     Active Substance: BEVACIZUMAB
     Dosage: CYCLE 8?OVER 30-90 MINS ON DAY 1,
     Route: 042
     Dates: start: 20130319
  2. BEVACIZUMAB. [Suspect]
     Active Substance: BEVACIZUMAB
     Dosage: CYCLE 19?OVER 30-90 MINS ON DAY 1,
     Route: 042
     Dates: start: 20131126
  3. BEVACIZUMAB. [Suspect]
     Active Substance: BEVACIZUMAB
     Dosage: CYCLE 20?OVER 30-90 MINS ON DAY 1,
     Route: 042
     Dates: start: 20131217
  4. VELIPARIB [Suspect]
     Active Substance: VELIPARIB
     Dosage: ON DAY 1-21, CYCLE 2
     Route: 048
     Dates: start: 20121024
  5. VELIPARIB [Suspect]
     Active Substance: VELIPARIB
     Dosage: ON DAY 1-21, CYCLE 6
     Route: 048
     Dates: start: 20130130
  6. BEVACIZUMAB. [Suspect]
     Active Substance: BEVACIZUMAB
     Dosage: CYCLE 4?OVER 30-90 MINS ON DAY 1,
     Route: 042
     Dates: start: 20121219
  7. BEVACIZUMAB. [Suspect]
     Active Substance: BEVACIZUMAB
     Dosage: CYCLE 7?OVER 30-90 MINS ON DAY 1,
     Route: 042
     Dates: start: 20130226
  8. VELIPARIB [Suspect]
     Active Substance: VELIPARIB
     Indication: OVARIAN CANCER
     Dosage: ON DAY 1-21,LAST ADMINISTERED DATE: 04/NOV/2012
     Route: 048
     Dates: start: 20121003
  9. VELIPARIB [Suspect]
     Active Substance: VELIPARIB
     Dosage: ON DAY 1-21, CYCLE 5
     Route: 048
     Dates: start: 20130109
  10. PACLITAXEL. [Suspect]
     Active Substance: PACLITAXEL
     Indication: OVARIAN CANCER
     Dosage: AUC=6 OVER 30 MIN ON DAY1 LAST ADMINSTRATION DATE : 24/OCT/2012
     Route: 042
     Dates: start: 20121003
  11. BEVACIZUMAB. [Suspect]
     Active Substance: BEVACIZUMAB
     Indication: OVARIAN CANCER
     Dosage: OVER 30-90 MINS ON DAY 1, LAST ADMINISTERED DATE: 24OCT/2012
     Route: 042
     Dates: start: 20121003
  12. BEVACIZUMAB. [Suspect]
     Active Substance: BEVACIZUMAB
     Dosage: CYCLE 11?OVER 30-90 MINS ON DAY 1,
     Route: 042
     Dates: start: 20130319
  13. BEVACIZUMAB. [Suspect]
     Active Substance: BEVACIZUMAB
     Dosage: CYCLE 13?OVER 30-90 MINS ON DAY 1,
     Route: 042
     Dates: start: 20130709
  14. BEVACIZUMAB. [Suspect]
     Active Substance: BEVACIZUMAB
     Dosage: CYCLE 12?OVER 30-90 MINS ON DAY 1,
     Route: 042
     Dates: start: 20130618
  15. BEVACIZUMAB. [Suspect]
     Active Substance: BEVACIZUMAB
     Dosage: CYCLE 18?OVER 30-90 MINS ON DAY 1,
     Route: 042
     Dates: start: 20131126
  16. BEVACIZUMAB. [Suspect]
     Active Substance: BEVACIZUMAB
     Dosage: CYCLE 22?OVER 30-90 MINS ON DAY 1,
     Route: 042
     Dates: start: 20140128
  17. BEVACIZUMAB. [Suspect]
     Active Substance: BEVACIZUMAB
     Dosage: CYCLE 21?OVER 30-90 MINS ON DAY 1,
     Route: 042
     Dates: start: 20140107
  18. BEVACIZUMAB. [Suspect]
     Active Substance: BEVACIZUMAB
     Dosage: CYCLE 3?OVER 30-90 MINS ON DAY 1,
     Route: 042
     Dates: start: 20121128
  19. BEVACIZUMAB. [Suspect]
     Active Substance: BEVACIZUMAB
     Dosage: CYCLE 5?OVER 30-90 MINS ON DAY 1,
     Route: 042
     Dates: start: 20130109
  20. BEVACIZUMAB. [Suspect]
     Active Substance: BEVACIZUMAB
     Dosage: CYCLE 6?OVER 30-90 MINS ON DAY 1,
     Route: 042
     Dates: start: 20130130
  21. CARBOPLATIN. [Suspect]
     Active Substance: CARBOPLATIN
     Indication: OVARIAN CANCER
     Dosage: AUC=6 OVER 30 MIN ON DAY1 LAST ADMINSTRATION DATE : 24/OCT/2012
     Route: 042
     Dates: start: 20121003
  22. BEVACIZUMAB. [Suspect]
     Active Substance: BEVACIZUMAB
     Dosage: CYCLE 15?OVER 30-90 MINS ON DAY 1,
     Route: 042
     Dates: start: 20130820
  23. BEVACIZUMAB. [Suspect]
     Active Substance: BEVACIZUMAB
     Dosage: CYCLE 17?OVER 30-90 MINS ON DAY 1,
     Route: 042
     Dates: start: 20131126
  24. BEVACIZUMAB. [Suspect]
     Active Substance: BEVACIZUMAB
     Dosage: CYCLE 2?OVER 30-90 MINS ON DAY 1,
     Route: 042
     Dates: start: 20121024
  25. BEVACIZUMAB. [Suspect]
     Active Substance: BEVACIZUMAB
     Dosage: CYCLE 16?OVER 30-90 MINS ON DAY 1,
     Route: 042
     Dates: start: 20130910
  26. VELIPARIB [Suspect]
     Active Substance: VELIPARIB
     Dosage: ON DAY 1-21, CYCLE 4
     Route: 048
     Dates: start: 20121128

REACTIONS (6)
  - Hypertension [Unknown]
  - Febrile neutropenia [Recovered/Resolved]
  - Platelet count decreased [Unknown]
  - Anaemia [Recovered/Resolved]
  - Neutrophil count decreased [Unknown]
  - White blood cell count decreased [Unknown]

NARRATIVE: CASE EVENT DATE: 20121105
